FAERS Safety Report 6753198-4 (Version None)
Quarter: 2010Q2

REPORT INFORMATION
  Report Type: 
  Country: None (occurrence: None)
  Receive Date: 20100603
  Receipt Date: 20100525
  Transmission Date: 20101027
  Serious: Yes (Other)
  Sender: FDA-Public Use
  Company Number: FR-PFIZER INC-2010065273

PATIENT
  Age: 84 Year
  Sex: Male

DRUGS (3)
  1. TAHOR [Suspect]
     Dosage: 20 MG, UNK
  2. HYDROCHLOROTHIAZIDE/OLMESARTAN [Concomitant]
     Dosage: UNK
  3. MEMANTINE [Concomitant]
     Dosage: UNK

REACTIONS (1)
  - SIALOADENITIS [None]
